FAERS Safety Report 15701966 (Version 1)
Quarter: 2018Q4

REPORT INFORMATION
  Report Type: Spontaneous
  Country: US (occurrence: US)
  Receive Date: 20181209
  Receipt Date: 20181209
  Transmission Date: 20190205
  Serious: No
  Sender: FDA-Public Use
  Company Number: PHEH2018US050897

PATIENT
  Age: 53 Year
  Sex: Female

DRUGS (4)
  1. SECUKINUMAB. [Suspect]
     Active Substance: SECUKINUMAB
     Indication: SPINAL COLUMN STENOSIS
  2. ENBREL [Suspect]
     Active Substance: ETANERCEPT
     Indication: SPINAL COLUMN STENOSIS
  3. ENBREL [Suspect]
     Active Substance: ETANERCEPT
     Indication: PSORIATIC ARTHROPATHY
     Dosage: UNK
     Route: 065
  4. SECUKINUMAB. [Suspect]
     Active Substance: SECUKINUMAB
     Indication: PSORIATIC ARTHROPATHY
     Dosage: UNK
     Route: 065

REACTIONS (4)
  - Pain [Unknown]
  - Tendonitis [Unknown]
  - Inflammatory pain [Unknown]
  - Drug ineffective [Unknown]

NARRATIVE: CASE EVENT DATE: 20181113
